FAERS Safety Report 10596338 (Version 2)
Quarter: 2014Q4

REPORT INFORMATION
  Report Type: Report from Study
  Country: US (occurrence: US)
  Receive Date: 20141120
  Receipt Date: 20141222
  Transmission Date: 20150529
  Serious: No
  Sender: FDA-Public Use
  Company Number: US-ALEXION-A201404374

PATIENT

DRUGS (1)
  1. SOLIRIS [Suspect]
     Active Substance: ECULIZUMAB
     Indication: PAROXYSMAL NOCTURNAL HAEMOGLOBINURIA
     Dosage: UNK
     Route: 042
     Dates: start: 2007

REACTIONS (5)
  - Yellow skin [Not Recovered/Not Resolved]
  - Ocular icterus [Not Recovered/Not Resolved]
  - Chromaturia [Not Recovered/Not Resolved]
  - Haemolysis [Not Recovered/Not Resolved]
  - Exposure during pregnancy [Unknown]
